FAERS Safety Report 20892307 (Version 2)
Quarter: 2022Q3

REPORT INFORMATION
  Report Type: Spontaneous
  Country: US (occurrence: US)
  Receive Date: 20220530
  Receipt Date: 20220708
  Transmission Date: 20221027
  Serious: Yes (Other)
  Sender: FDA-Public Use
  Company Number: US-BRISTOL-MYERS SQUIBB COMPANY-2022-047841

PATIENT
  Age: 51 Year
  Sex: Female

DRUGS (2)
  1. ORENCIA [Suspect]
     Active Substance: ABATACEPT
     Indication: Rheumatoid arthritis
     Route: 058
     Dates: start: 20211015
  2. ORENCIA [Suspect]
     Active Substance: ABATACEPT
     Route: 058
     Dates: start: 20210928

REACTIONS (11)
  - Joint swelling [Unknown]
  - Arthralgia [Unknown]
  - Blister [Not Recovered/Not Resolved]
  - Urinary tract infection [Unknown]
  - Urine odour abnormal [Unknown]
  - Oropharyngeal pain [Unknown]
  - Mouth ulceration [Unknown]
  - Injection site erythema [Unknown]
  - Adverse event [Unknown]
  - Infection [Unknown]
  - Drug ineffective [Unknown]
